FAERS Safety Report 14526467 (Version 1)
Quarter: 2018Q1

REPORT INFORMATION
  Report Type: Spontaneous
  Country: US (occurrence: US)
  Receive Date: 20180213
  Receipt Date: 20180213
  Transmission Date: 20180509
  Serious: No
  Sender: FDA-Public Use
  Company Number: US-BAYER-2018-023145

PATIENT
  Age: 83 Year
  Sex: Male
  Weight: 58.96 kg

DRUGS (3)
  1. CALCIUM [Concomitant]
     Active Substance: CALCIUM
  2. PROSTATE GLAND EXTRACT [Concomitant]
  3. ALEVE [Suspect]
     Active Substance: NAPROXEN SODIUM
     Indication: PAIN
     Dosage: 1-3 ALEVE ONCE DAILY/ AS NEEDED
     Route: 048
     Dates: start: 201711

REACTIONS (5)
  - Foreign body in respiratory tract [Recovered/Resolved]
  - Product prescribing issue [Unknown]
  - Wrong technique in product usage process [Unknown]
  - Product use issue [Unknown]
  - Throat irritation [Recovered/Resolved]

NARRATIVE: CASE EVENT DATE: 201711
